FAERS Safety Report 10538000 (Version 1)
Quarter: 2014Q4

REPORT INFORMATION
  Report Type: Spontaneous
  Country: AU (occurrence: AU)
  Receive Date: 20141023
  Receipt Date: 20141023
  Transmission Date: 20150529
  Serious: Yes (Other)
  Sender: FDA-Public Use
  Company Number: AU-SA-2014SA142614

PATIENT
  Age: 74 Year
  Sex: Female

DRUGS (11)
  1. RASBURICASE [Suspect]
     Active Substance: RASBURICASE
     Indication: GOUTY TOPHUS
     Route: 042
  2. RASBURICASE [Suspect]
     Active Substance: RASBURICASE
     Indication: GOUTY TOPHUS
     Route: 042
     Dates: start: 200505
  3. FELODIPINE. [Concomitant]
     Active Substance: FELODIPINE
  4. ERYTHROPOIETIN [Concomitant]
     Active Substance: ERYTHROPOIETIN
  5. LEVOTHYROXINE SODIUM. [Concomitant]
     Active Substance: LEVOTHYROXINE SODIUM
  6. ASPIRIN. [Concomitant]
     Active Substance: ASPIRIN
  7. PERINDOPRIL [Concomitant]
     Active Substance: PERINDOPRIL
  8. PREDNISOLONE. [Suspect]
     Active Substance: PREDNISOLONE
     Indication: PROPHYLAXIS
     Route: 065
     Dates: start: 200505
  9. PREDNISOLONE. [Suspect]
     Active Substance: PREDNISOLONE
     Indication: PROPHYLAXIS
     Route: 065
     Dates: start: 2005, end: 2005
  10. AMITRIPTYLINE [Concomitant]
     Active Substance: AMITRIPTYLINE
  11. RASBURICASE [Suspect]
     Active Substance: RASBURICASE
     Indication: GOUTY TOPHUS
     Route: 042

REACTIONS (4)
  - Myopathy [Unknown]
  - Gouty tophus [Unknown]
  - Pain [Unknown]
  - Treatment failure [Unknown]
